FAERS Safety Report 8017611 (Version 2)
Quarter: 2012Q4

REPORT INFORMATION
  Report Type: 
  Country: CA (occurrence: CA)
  Receive Date: 20110630
  Receipt Date: 20121115
  Transmission Date: 20130627
  Serious: Yes (Hospitalization)
  Sender: FDA-Public Use
  Company Number: CA-ASTRAZENECA-2011SE33731

PATIENT
  Age: 79 Year
  Sex: Male
  Weight: 72.6 kg

DRUGS (3)
  1. SYMBICORT TURBUHALER [Suspect]
     Indication: ASTHMA
     Dosage: 200 MCG TWO TIMES A DAY
     Route: 055
     Dates: start: 20110514, end: 20110525
  2. ENALAPRIL [Concomitant]
     Route: 048
  3. LORATADINE [Concomitant]
     Route: 048

REACTIONS (3)
  - Joint stiffness [Not Recovered/Not Resolved]
  - Arthralgia [Not Recovered/Not Resolved]
  - Contusion [Not Recovered/Not Resolved]
